FAERS Safety Report 24553630 (Version 1)
Quarter: 2024Q4

REPORT INFORMATION
  Report Type: Report from Study
  Country: US (occurrence: US)
  Receive Date: 20241028
  Receipt Date: 20241028
  Transmission Date: 20250115
  Serious: No
  Sender: ROCHE
  Company Number: US-ROCHE-3540938

PATIENT
  Age: 78 Year
  Sex: Female
  Weight: 67.0 kg

DRUGS (11)
  1. NUTROPIN AQ [Suspect]
     Active Substance: SOMATROPIN
     Indication: Postoperative hypopituitarism
     Route: 058
  2. LEVOTHYROXINE [Concomitant]
     Active Substance: LEVOTHYROXINE
  3. HYDROCORTISONE [Concomitant]
     Active Substance: HYDROCORTISONE
  4. XANAX [Concomitant]
     Active Substance: ALPRAZOLAM
  5. ESTRADIOL [Concomitant]
     Active Substance: ESTRADIOL
  6. CLARINEX [Concomitant]
     Active Substance: DESLORATADINE
  7. ESTRADIOL [Concomitant]
     Active Substance: ESTRADIOL
  8. FLOVENT [Concomitant]
     Active Substance: FLUTICASONE PROPIONATE
  9. FLUCONAZOLE [Concomitant]
     Active Substance: FLUCONAZOLE
  10. HYDROCHLOROTHIAZIDE [Concomitant]
     Active Substance: HYDROCHLOROTHIAZIDE
  11. VAGIFEM [Concomitant]
     Active Substance: ESTRADIOL

REACTIONS (2)
  - Fatigue [Unknown]
  - Off label use [Unknown]
